FAERS Safety Report 5603199-4 (Version None)
Quarter: 2008Q1

REPORT INFORMATION
  Report Type: 
  Country: None (occurrence: None)
  Receive Date: 20080125
  Receipt Date: 20080115
  Transmission Date: 20080703
  Serious: Yes (Hospitalization, Other)
  Sender: FDA-Public Use
  Company Number: FI-PFIZER INC-2008001389

PATIENT
  Sex: Female

DRUGS (5)
  1. CHANTIX [Suspect]
     Indication: SMOKING CESSATION THERAPY
     Route: 048
     Dates: start: 20070913, end: 20080109
  2. SYMBICORT [Concomitant]
  3. OXIS [Concomitant]
  4. PREDNISOLONE [Concomitant]
  5. ALL OTHER THERAPEUTIC PRODUCTS [Concomitant]

REACTIONS (7)
  - ABDOMINAL DISTENSION [None]
  - ABDOMINAL PAIN [None]
  - ATELECTASIS [None]
  - C-REACTIVE PROTEIN INCREASED [None]
  - MYCOPLASMA INFECTION [None]
  - NAUSEA [None]
  - PLEURISY [None]
